FAERS Safety Report 9921705 (Version 1)
Quarter: 2014Q1

REPORT INFORMATION
  Report Type: Spontaneous
  Country: TN (occurrence: SG)
  Receive Date: 20140225
  Receipt Date: 20140225
  Transmission Date: 20141002
  Serious: Yes (Hospitalization, Other)
  Sender: FDA-Public Use
  Company Number: SG-PFIZER INC-2014047436

PATIENT
  Age: 49 Year
  Sex: Female

DRUGS (5)
  1. SULFASALAZINE [Suspect]
     Indication: SYNOVITIS
     Dosage: 500 MG, DAILY
  2. SULFASALAZINE [Suspect]
     Dosage: TITRATED TO 1 G, 2X/DAY OVER 2 MONTHS
  3. SULFASALAZINE [Suspect]
     Dosage: 500 MG, 2X/DAY
  4. NAPROXEN [Concomitant]
     Indication: SYNOVITIS
     Dosage: UNK
  5. DICLOFENAC [Concomitant]
     Indication: SYNOVITIS
     Dosage: UNK

REACTIONS (5)
  - Meningitis aseptic [Recovered/Resolved]
  - Hypersensitivity [Recovered/Resolved]
  - Rash maculo-papular [Recovered/Resolved]
  - Transaminases increased [Recovered/Resolved]
  - Oedema [Recovered/Resolved]
